FAERS Safety Report 11984301 (Version 1)
Quarter: 2016Q1

REPORT INFORMATION
  Report Type: Spontaneous
  Country: US (occurrence: US)
  Receive Date: 20160201
  Receipt Date: 20160201
  Transmission Date: 20160526
  Serious: No
  Sender: FDA-Public Use
  Company Number: US-KADMON PHARMACEUTICALS, LLC-KAD201501-000039

PATIENT
  Age: 61 Year
  Sex: Male

DRUGS (2)
  1. RIBAVIRIN 200 MG TABLETS [Suspect]
     Active Substance: RIBAVIRIN
     Indication: HEPATITIS C
     Route: 048
     Dates: start: 20141109, end: 20141114
  2. SOVALDI [Concomitant]
     Active Substance: SOFOSBUVIR

REACTIONS (3)
  - Oropharyngeal pain [Unknown]
  - Fatigue [Unknown]
  - Headache [Unknown]

NARRATIVE: CASE EVENT DATE: 20141109
